FAERS Safety Report 8889863 (Version 1)
Quarter: 2012Q4

REPORT INFORMATION
  Report Type: 
  Country: US (occurrence: US)
  Receive Date: 20121107
  Receipt Date: 20121107
  Transmission Date: 20130627
  Serious: No
  Sender: FDA-Public Use
  Company Number: US-ABBOTT-12P-163-0962762-00

PATIENT
  Sex: Female
  Weight: 95.34 kg

DRUGS (6)
  1. TRICOR [Suspect]
     Indication: BLOOD TRIGLYCERIDES INCREASED
     Route: 048
     Dates: start: 201206, end: 201207
  2. VENLAFAXINE [Concomitant]
     Indication: HORMONE LEVEL ABNORMAL
  3. VENLAFAXINE [Concomitant]
     Indication: HYSTERECTOMY
  4. DICLOFENAC [Concomitant]
     Indication: ARTHRITIS
  5. LANSOPRAZOLE [Concomitant]
     Indication: GASTROOESOPHAGEAL REFLUX DISEASE
  6. LISINOPRIL/HYDROCHLOROTHIAZIDE [Concomitant]
     Indication: HYPERTENSION

REACTIONS (4)
  - Chest discomfort [Not Recovered/Not Resolved]
  - Pain in extremity [Recovering/Resolving]
  - Muscular weakness [Not Recovered/Not Resolved]
  - Dyspnoea [Not Recovered/Not Resolved]
